FAERS Safety Report 24062440 (Version 1)
Quarter: 2024Q3

REPORT INFORMATION
  Report Type: Spontaneous
  Country: RU (occurrence: RU)
  Receive Date: 20240708
  Receipt Date: 20240708
  Transmission Date: 20241016
  Serious: Yes (Other)
  Sender: SANDOZ
  Company Number: None

PATIENT
  Sex: Female
  Weight: 45.3 kg

DRUGS (7)
  1. ERELZI [Suspect]
     Active Substance: ETANERCEPT-SZZS
     Indication: Product used for unknown indication
     Dosage: 35 MG
     Route: 058
     Dates: start: 20240601, end: 20240602
  2. AQUADETRIM [Concomitant]
     Indication: Product used for unknown indication
     Dosage: 2 DROP, PES OS
     Route: 065
  3. DICLOFENAC [Concomitant]
     Active Substance: DICLOFENAC
     Indication: Product used for unknown indication
     Dosage: 100 MG, PERIODICALLY, PES, OS
     Route: 065
     Dates: start: 20230601, end: 20240128
  4. Ferrum lek [Concomitant]
     Indication: Product used for unknown indication
     Dosage: 400 MG, PES OS
     Route: 065
     Dates: start: 20230301
  5. FOLIC ACID [Concomitant]
     Active Substance: FOLIC ACID
     Indication: Product used for unknown indication
     Dosage: 1 MG, PES OS
     Route: 065
     Dates: start: 20210201
  6. METHOTREXATE [Concomitant]
     Active Substance: METHOTREXATE
     Indication: Product used for unknown indication
     Dosage: 15 MG
     Route: 030
     Dates: start: 20210201
  7. OMEPRAZOLE [Concomitant]
     Active Substance: OMEPRAZOLE
     Indication: Product used for unknown indication
     Dosage: 20 MG, PES OS
     Route: 065
     Dates: start: 20230601

REACTIONS (5)
  - Juvenile spondyloarthritis [Recovering/Resolving]
  - Nausea [Recovering/Resolving]
  - Dizziness [Recovering/Resolving]
  - Pain [Recovering/Resolving]
  - Headache [Recovering/Resolving]

NARRATIVE: CASE EVENT DATE: 20240601
